FAERS Safety Report 8904135 (Version 1)
Quarter: 2012Q4

REPORT INFORMATION
  Report Type: Report from Study
  Country: GR (occurrence: GR)
  Receive Date: 20121112
  Receipt Date: 20121112
  Transmission Date: 20130627
  Serious: Yes (Other)
  Sender: FDA-Public Use
  Company Number: GR-BAYER-2012-117794

PATIENT
  Age: 74 Year
  Sex: Male

DRUGS (5)
  1. ATORVASTATIN [Suspect]
  2. ACETYLSALICYLIC ACID({=100 MG) [Suspect]
  3. PAROXETINE [Suspect]
  4. ISOSORBIDE MONONITRATE [Suspect]
  5. DILTIAZEM HYDROCHLORIDE [Suspect]

REACTIONS (1)
  - Pemphigoid [None]
